FAERS Safety Report 7640352-2 (Version None)
Quarter: 2011Q3

REPORT INFORMATION
  Report Type: 
  Country: None (occurrence: None)
  Receive Date: 20110728
  Receipt Date: 20110726
  Transmission Date: 20111222
  Serious: Yes (Hospitalization)
  Sender: FDA-Public Use
  Company Number: KR-BAYER-2011-014615

PATIENT
  Age: 53 Year
  Sex: Male
  Weight: 59 kg

DRUGS (28)
  1. MEK INHIBITOR (DIHYDROXYPROP-DIFLU-METHOXYPHEN-CYCLOPROPA-SULFAMI) [Suspect]
     Dosage: 60 MG, BID
     Route: 048
     Dates: start: 20110227, end: 20110301
  2. LANSOPRAZOLE [Concomitant]
     Dosage: 15 ML, UNK
     Route: 048
     Dates: start: 20110217
  3. PHENTERMINE [Concomitant]
     Indication: PREMEDICATION
     Dosage: 4 MG, UNK
     Route: 042
     Dates: start: 20110215, end: 20110215
  4. LASIX [Concomitant]
     Indication: PREMEDICATION
     Dosage: 20 MG, UNK
     Route: 042
     Dates: start: 20110215, end: 20110215
  5. ACETYLCYSTEINE [Concomitant]
     Dosage: 1200 MG, UNK
     Route: 042
     Dates: start: 20110214, end: 20110216
  6. CEFTRIAXONE [Concomitant]
     Indication: PYREXIA
     Dosage: 2 G, UNK
     Route: 042
     Dates: start: 20110214, end: 20110219
  7. CLINIMIX 2.75/10 SULFITE FREE IN DEXTROSE 10% [Concomitant]
     Indication: MEDICAL DIET
     Dosage: 1500 ML, UNK
     Route: 042
     Dates: start: 20110214, end: 20110216
  8. PHENTERMINE [Concomitant]
     Dosage: 4 MG, UNK
     Route: 042
     Dates: start: 20110216, end: 20110216
  9. PHENTERMINE [Concomitant]
     Dosage: 1000 MG, UNK
     Route: 042
     Dates: start: 20110216, end: 20110216
  10. LASIX [Concomitant]
     Dosage: 20 MG, UNK
     Route: 042
     Dates: start: 20110216, end: 20110216
  11. K40NS500 [Concomitant]
     Indication: MEDICAL DIET
     Dosage: 500 ML, UNK
     Route: 042
     Dates: start: 20110216, end: 20110217
  12. LOPERAMIDE [Concomitant]
     Indication: DIARRHOEA
     Dosage: 2 MG, PRN
     Route: 048
     Dates: start: 20110201
  13. NEURONTIN [Concomitant]
     Indication: NEUROPATHY PERIPHERAL
     Dosage: 30 MG, UNK
     Route: 048
     Dates: start: 20101115
  14. CELEBREX [Concomitant]
     Indication: NEUROPATHY PERIPHERAL
     Dosage: 200 MG, UNK
     Route: 048
     Dates: start: 20100608
  15. PHENTERMINE [Concomitant]
     Dosage: UNK
     Route: 048
     Dates: start: 20110217
  16. MEK INHIBITOR (DIHYDROXYPROP-DIFLU-METHOXYPHEN-CYCLOPROPA-SULFAMI) [Suspect]
     Dosage: 30 MG, BID
     Route: 048
     Dates: start: 20110314, end: 20110725
  17. SORAFENIB (RAF KINASE INHIBITOR) [Suspect]
     Dosage: 400 MG, QD
     Route: 048
     Dates: start: 20110227, end: 20110301
  18. CARVEDILOL [Concomitant]
     Indication: HYPERTENSION
     Dosage: 25 MG, UNK
     Route: 048
     Dates: start: 20100606
  19. NEURONTIN [Concomitant]
  20. MEK INHIBITOR (DIHYDROXYPROP-DIFLU-METHOXYPHEN-CYCLOPROPA-SULFAMI) [Suspect]
     Indication: HEPATIC NEOPLASM MALIGNANT
     Dosage: 50 MG, BID
     Route: 048
     Dates: start: 20110207, end: 20110212
  21. PHENTERMINE [Concomitant]
     Dosage: 1440 ML, UNK
     Dates: start: 20110216, end: 20110217
  22. PHENTERMINE [Concomitant]
     Dosage: 150000 U, UNK
     Dates: start: 20110215, end: 20110220
  23. SORAFENIB (RAF KINASE INHIBITOR) [Suspect]
     Indication: HEPATIC NEOPLASM MALIGNANT
     Dosage: 200 MG AM, 400 MG PM = 600 MG
     Route: 048
     Dates: start: 20110207, end: 20110212
  24. SORAFENIB (RAF KINASE INHIBITOR) [Suspect]
     Dosage: 400 MG, QD
     Route: 048
     Dates: start: 20110314, end: 20110725
  25. ADALAT [Concomitant]
     Indication: HYPERTENSION
     Dosage: 60 MG, UNK
     Route: 048
     Dates: start: 20100605
  26. LANSOPRAZOLE [Concomitant]
     Indication: GASTROOESOPHAGEAL REFLUX DISEASE
     Dosage: 30 MG, UNK
     Route: 048
     Dates: start: 20100604
  27. ADELAVIN [Concomitant]
     Indication: SUPPLEMENTATION THERAPY
     Dosage: 2 ML, UNK
     Route: 042
     Dates: start: 20110214, end: 20110216
  28. FURTMAN [Concomitant]
     Indication: MEDICAL DIET
     Dosage: 0.2 ML, UNK
     Route: 042
     Dates: start: 20110217, end: 20110218

REACTIONS (2)
  - DUODENAL ULCER [None]
  - UPPER GASTROINTESTINAL HAEMORRHAGE [None]
